FAERS Safety Report 25980306 (Version 2)
Quarter: 2025Q4

REPORT INFORMATION
  Report Type: Report from Study
  Country: EU (occurrence: EU)
  Receive Date: 20251030
  Receipt Date: 20251111
  Transmission Date: 20260118
  Serious: Yes (Death, Hospitalization, Other)
  Sender: JOHNSON AND JOHNSON
  Company Number: EU-JNJFOC-20221026073

PATIENT
  Age: 20 Year
  Sex: Male

DRUGS (3)
  1. TREMFYA [Suspect]
     Active Substance: GUSELKUMAB
     Indication: Psoriasis
     Route: 065
     Dates: start: 20210428, end: 202208
  2. TREMFYA [Suspect]
     Active Substance: GUSELKUMAB
     Route: 065
     Dates: start: 202212
  3. ORFADIN [Concomitant]
     Active Substance: NITISINONE
     Indication: Product used for unknown indication

REACTIONS (3)
  - Death [Fatal]
  - Hepatocellular carcinoma [Not Recovered/Not Resolved]
  - Hepatectomy [Not Recovered/Not Resolved]

NARRATIVE: CASE EVENT DATE: 20220721
